FAERS Safety Report 5662738-8 (Version None)
Quarter: 2008Q1

REPORT INFORMATION
  Report Type: 
  Country: None (occurrence: None)
  Receive Date: 20080311
  Receipt Date: 20080311
  Transmission Date: 20080703
  Serious: No
  Sender: FDA-Public Use
  Company Number: None

PATIENT
  Age: 59 Year
  Sex: Male
  Weight: 88 kg

DRUGS (2)
  1. VARENICLINE [Suspect]
     Indication: SMOKING CESSATION THERAPY
     Dosage: PER STARTER PACK
     Dates: start: 20080109, end: 20080213
  2. QUETIAPINE FUMARATE [Concomitant]

REACTIONS (1)
  - SUICIDE ATTEMPT [None]
